FAERS Safety Report 21899833 (Version 1)
Quarter: 2023Q1

REPORT INFORMATION
  Report Type: Spontaneous
  Country: US (occurrence: US)
  Receive Date: 20230123
  Receipt Date: 20230123
  Transmission Date: 20230417
  Serious: No
  Sender: FDA-Public Use
  Company Number: US-NOVOPROD-957519

PATIENT
  Sex: Female

DRUGS (2)
  1. OZEMPIC [Suspect]
     Active Substance: SEMAGLUTIDE
     Indication: Weight control
     Dosage: UNK
     Route: 058
  2. NovoFine Plus 4mm (32G) [Concomitant]
     Indication: Device therapy
     Dosage: UNK
     Route: 058

REACTIONS (2)
  - Weight decreased [Unknown]
  - Off label use [Not Recovered/Not Resolved]
